FAERS Safety Report 7792211-2 (Version None)
Quarter: 2011Q4

REPORT INFORMATION
  Report Type: 
  Country: None (occurrence: None)
  Receive Date: 20111003
  Receipt Date: 20111003
  Transmission Date: 20120403
  Serious: Yes (Other)
  Sender: FDA-Public Use
  Company Number: None

PATIENT
  Age: 59 Year
  Sex: Male
  Weight: 62.595 kg

DRUGS (1)
  1. TERAZOSIN HCL [Suspect]
     Indication: BLADDER CANCER
     Dosage: 5MG
     Dates: start: 20101106, end: 20111002

REACTIONS (3)
  - ERECTILE DYSFUNCTION [None]
  - ANORGASMIA [None]
  - EJACULATION FAILURE [None]
